FAERS Safety Report 10247864 (Version 1)
Quarter: 2014Q2

REPORT INFORMATION
  Report Type: Spontaneous
  Country: FR (occurrence: FR)
  Receive Date: 20140619
  Receipt Date: 20140619
  Transmission Date: 20141212
  Serious: Yes (Hospitalization, Other)
  Sender: FDA-Public Use
  Company Number: FR-PFIZER INC-2014162536

PATIENT
  Age: 13 Year
  Sex: Female

DRUGS (5)
  1. ZOLOFT [Suspect]
     Dosage: 100 MG (2 - 50 MG DOSAGE FORMS), 1X/DAY
     Route: 048
     Dates: start: 2014, end: 201405
  2. ZOLOFT [Suspect]
     Dosage: 50 MG, 2X/DAY
     Route: 048
     Dates: start: 201405
  3. RISPERDAL [Suspect]
     Dosage: 2 MG TABLET, 1 DF, 2X/DAY
     Route: 048
     Dates: start: 2014, end: 20140427
  4. TERCIAN [Concomitant]
     Indication: DEPRESSION
     Dosage: UNK MG, 1X/DAY
     Dates: start: 201401, end: 201405
  5. TERCIAN [Concomitant]
     Dosage: 30 MG, 1X/DAY
     Dates: start: 201405, end: 201404

REACTIONS (2)
  - Neuroleptic malignant syndrome [Recovered/Resolved]
  - Suicide attempt [Unknown]
